FAERS Safety Report 4271958-9 (Version None)
Quarter: 2004Q1

REPORT INFORMATION
  Report Type: 
  Country: None (occurrence: None)
  Receive Date: 20040113
  Receipt Date: 20040106
  Transmission Date: 20041129
  Serious: Yes (Other)
  Sender: FDA-Public Use
  Company Number: GBWYE497708JAN04

PATIENT
  Age: 33 Year
  Sex: Female

DRUGS (3)
  1. EFFEXOR [Suspect]
     Indication: DEPRESSION
     Dosage: 150MG FREQUENCY UNSPECIFIED ORAL
     Route: 048
     Dates: start: 20031003, end: 20031215
  2. EFFEXOR [Suspect]
     Indication: DEPRESSION
     Dosage: 150MG FREQUENCY UNSPECIFIED ORAL
     Route: 048
     Dates: start: 20031222
  3. MIRTAZAPINE [Concomitant]

REACTIONS (4)
  - AGITATION [None]
  - COORDINATION ABNORMAL [None]
  - DRUG WITHDRAWAL SYNDROME [None]
  - HYPERHIDROSIS [None]
